FAERS Safety Report 13647023 (Version 1)
Quarter: 2017Q2

REPORT INFORMATION
  Report Type: Spontaneous
  Country: US (occurrence: US)
  Receive Date: 20170613
  Receipt Date: 20170613
  Transmission Date: 20170830
  Serious: Yes (Disabling)
  Sender: FDA-Public Use
  Company Number: None

PATIENT
  Age: 62 Year
  Sex: Female
  Weight: 56.3 kg

DRUGS (5)
  1. HARVONI [Suspect]
     Active Substance: LEDIPASVIR\SOFOSBUVIR
     Indication: HEPATITIS C
     Route: 048
     Dates: start: 20160817, end: 20161017
  2. MULTIVITAMINS [Concomitant]
     Active Substance: VITAMINS
  3. CALCIUM+M AGNESIUM [Concomitant]
  4. XANAX [Concomitant]
     Active Substance: ALPRAZOLAM
  5. FLAXSEED [Concomitant]
     Active Substance: FLAX SEED

REACTIONS (15)
  - Neuropathy peripheral [None]
  - Palpitations [None]
  - Anxiety [None]
  - Impaired work ability [None]
  - Weight decreased [None]
  - Mental disorder [None]
  - Loss of employment [None]
  - Lacrimation decreased [None]
  - Executive dysfunction [None]
  - Dry eye [None]
  - Depression [None]
  - Insomnia [None]
  - Visual acuity reduced [None]
  - Mania [None]
  - Hypoaesthesia [None]

NARRATIVE: CASE EVENT DATE: 20160915
